FAERS Safety Report 4882499-X (Version None)
Quarter: 2006Q1

REPORT INFORMATION
  Report Type: 
  Country: None (occurrence: None)
  Receive Date: 20060113
  Receipt Date: 20060103
  Transmission Date: 20060701
  Serious: Yes (Other)
  Sender: FDA-Public Use
  Company Number: 2006001758

PATIENT
  Age: 80 Year
  Sex: Female
  Weight: 122.4258 kg

DRUGS (5)
  1. DAYPRO [Suspect]
     Indication: ILL-DEFINED DISORDER
     Dosage: ORAL
     Route: 048
  2. ASPIRIN [Suspect]
     Indication: THROMBOSIS PROPHYLAXIS
     Dosage: 1 IN 1 D, ORAL
     Route: 048
  3. VALSARTAN [Concomitant]
  4. FUROSEMIDE [Concomitant]
  5. GLUCOSAMINE (GLUCOSAMINE) [Concomitant]

REACTIONS (5)
  - GASTRIC ULCER [None]
  - GASTRITIS [None]
  - GASTRITIS EROSIVE [None]
  - GASTROOESOPHAGEAL REFLUX DISEASE [None]
  - VERTIGO [None]
